FAERS Safety Report 15917939 (Version 1)
Quarter: 2019Q1

REPORT INFORMATION
  Report Type: Spontaneous
  Country: US (occurrence: US)
  Receive Date: 20190205
  Receipt Date: 20190205
  Transmission Date: 20190417
  Serious: No
  Sender: FDA-Public Use
  Company Number: US-BAUSCH-BL-2019-002144

PATIENT
  Age: 33 Year
  Sex: Female
  Weight: 78.54 kg

DRUGS (1)
  1. LATANOPROST OPHTHALMIC SOLUTION 0.005% [Suspect]
     Active Substance: LATANOPROST
     Indication: INTRAOCULAR PRESSURE TEST ABNORMAL
     Route: 047
     Dates: start: 201811, end: 20190120

REACTIONS (1)
  - Eye colour change [Not Recovered/Not Resolved]

NARRATIVE: CASE EVENT DATE: 201901
